FAERS Safety Report 11381145 (Version 2)
Quarter: 2015Q3

REPORT INFORMATION
  Report Type: Report from Study
  Country: JP (occurrence: JP)
  Receive Date: 20150814
  Receipt Date: 20150831
  Transmission Date: 20151125
  Serious: Yes (Other)
  Sender: FDA-Public Use
  Company Number: JP-OTSUKA-2015_007139

PATIENT

DRUGS (18)
  1. PARIET [Concomitant]
     Active Substance: RABEPRAZOLE SODIUM
     Indication: GASTRIC VARICES
     Dosage: 10 MG/DAY
     Route: 048
  2. ZOLPIDEM TARTRATE. [Concomitant]
     Active Substance: ZOLPIDEM TARTRATE
     Indication: INSOMNIA
     Dosage: 5 MG/DAY
     Route: 048
     Dates: start: 20150518, end: 20150630
  3. YOKUKANSAN [Concomitant]
     Active Substance: HERBALS
     Indication: PSYCHIATRIC SYMPTOM
     Dosage: 2.5 G/DAY
     Route: 048
     Dates: start: 20150623, end: 20150716
  4. RISPERDAL [Concomitant]
     Active Substance: RISPERIDONE
     Indication: PSYCHIATRIC SYMPTOM
     Dosage: 1 ML/DAY
     Route: 048
     Dates: start: 20150623, end: 20150710
  5. LANTUS [Concomitant]
     Active Substance: INSULIN GLARGINE
     Indication: TYPE 2 DIABETES MELLITUS
     Dosage: 4 IU/DAY
     Route: 058
     Dates: start: 20150526
  6. THYRADIN S [Concomitant]
     Active Substance: LEVOTHYROXINE SODIUM
     Indication: HYPOTHYROIDISM
     Dosage: 100 ?G/DAY
     Route: 048
  7. ISOLEUCINE W/LEUCINE/VALINE [Concomitant]
     Active Substance: ISOLEUCINE\LEUCINE\VALINE
     Indication: HYPOALBUMINAEMIA
     Dosage: 12.45 G/DAY
     Route: 048
  8. ALBUMIN BEHRING [Concomitant]
     Indication: OEDEMA DUE TO HEPATIC DISEASE
     Dosage: 100 ML/DAY
     Route: 042
     Dates: start: 20150519, end: 20150521
  9. TOLVAPTAN [Suspect]
     Active Substance: TOLVAPTAN
     Indication: OEDEMA DUE TO HEPATIC DISEASE
     Dosage: 15 MG, QD
     Route: 048
     Dates: start: 20150515, end: 20150715
  10. ALBUMIN BEHRING [Concomitant]
     Indication: HYPOALBUMINAEMIA
  11. HEPARIN CALCIUM [Concomitant]
     Active Substance: HEPARIN CALCIUM
     Indication: DISSEMINATED INTRAVASCULAR COAGULATION
     Dosage: 5 KIU/DAY
     Route: 058
     Dates: start: 20150626, end: 20150714
  12. SPIRONOLACTONE. [Concomitant]
     Active Substance: SPIRONOLACTONE
     Indication: FLUID RETENTION
     Dosage: 50 MG/DAY
     Route: 048
  13. TENELIA [Concomitant]
     Active Substance: CITALOPRAM HYDROBROMIDE
     Indication: TYPE 2 DIABETES MELLITUS
     Dosage: 20 MG/DAY
     Route: 048
  14. FUROSEMIDE. [Concomitant]
     Active Substance: FUROSEMIDE
     Indication: FLUID RETENTION
     Dosage: 40 MG/DAY
     Route: 048
  15. GABEXATE MESILATE [Concomitant]
     Active Substance: GABEXATE MESYLATE
     Indication: DISSEMINATED INTRAVASCULAR COAGULATION
     Dosage: 1000 MG/DAY
     Route: 042
     Dates: start: 20150602, end: 20150603
  16. RILIAJIN [Concomitant]
     Indication: DISSEMINATED INTRAVASCULAR COAGULATION
     Dosage: 3 G/DAY
     Route: 042
     Dates: start: 20150601, end: 20150622
  17. RECOMODULIN [Concomitant]
     Active Substance: THROMBOMODULIN ALFA
     Indication: DISSEMINATED INTRAVASCULAR COAGULATION
     Dosage: 19.2 KIU/DAY
     Route: 041
     Dates: start: 20150616, end: 20150621
  18. HUMALOG [Concomitant]
     Active Substance: INSULIN LISPRO
     Indication: TYPE 2 DIABETES MELLITUS
     Dosage: 16 IU/DAY
     Route: 058
     Dates: start: 20150526

REACTIONS (2)
  - Overdose [Unknown]
  - Blood urea increased [Unknown]
